FAERS Safety Report 10686055 (Version 4)
Quarter: 2015Q1

REPORT INFORMATION
  Report Type: Spontaneous
  Country: BR (occurrence: BR)
  Receive Date: 20141231
  Receipt Date: 20150218
  Transmission Date: 20150720
  Serious: Yes (Other)
  Sender: FDA-Public Use
  Company Number: PHHY2014BR170234

PATIENT
  Sex: Male
  Weight: 99 kg

DRUGS (10)
  1. DEPURA [Concomitant]
     Active Substance: CHOLECALCIFEROL
     Indication: VITAMIN SUPPLEMENTATION
     Dosage: 10 DF, QD
     Route: 048
  2. FUROSEMIDA [Concomitant]
     Active Substance: FUROSEMIDE
     Indication: URINARY RETENTION
  3. GARDENAL [Concomitant]
     Active Substance: PHENOBARBITAL
     Indication: EPILEPSY
     Dosage: 1 DF, QD
     Route: 048
  4. RASILEZ [Suspect]
     Active Substance: ALISKIREN
     Indication: HYPERTENSION
     Dosage: 1 DF, QD
     Route: 048
     Dates: start: 201211
  5. LOSARTAN [Concomitant]
     Active Substance: LOSARTAN
     Indication: HYPERTENSION
     Dosage: 1 DF, QD
     Route: 048
     Dates: start: 201211
  6. MODURETIC 5-50 [Concomitant]
     Active Substance: AMILORIDE HYDROCHLORIDE\HYDROCHLOROTHIAZIDE
     Indication: HYPERTENSION
     Dosage: 0.5 DF, QD
     Route: 048
  7. TEGRETOL [Suspect]
     Active Substance: CARBAMAZEPINE
     Indication: EPILEPSY
     Dosage: 400 MG, Q12H (EVERY 12 HOURS)
     Route: 048
  8. TEGRETOL [Suspect]
     Active Substance: CARBAMAZEPINE
     Dosage: 200 MG, BID
     Route: 048
     Dates: start: 1984
  9. ENABLEX [Suspect]
     Active Substance: DARIFENACIN\DARIFENACIN HYDROBROMIDE
     Indication: HYPOTONIC URINARY BLADDER
     Dosage: 7.5 MG, QD
     Route: 048
     Dates: start: 2008
  10. FUROSEMIDA [Concomitant]
     Active Substance: FUROSEMIDE
     Indication: POLLAKIURIA
     Dosage: 1 DF, QD
     Route: 048
     Dates: start: 2008

REACTIONS (4)
  - Dementia Alzheimer^s type [Not Recovered/Not Resolved]
  - Epilepsy [Not Recovered/Not Resolved]
  - Cardiac failure congestive [Not Recovered/Not Resolved]
  - Product use issue [Unknown]
